FAERS Safety Report 22194472 (Version 1)
Quarter: 2023Q2

REPORT INFORMATION
  Report Type: Spontaneous
  Country: US (occurrence: US)
  Receive Date: 20230411
  Receipt Date: 20230411
  Transmission Date: 20230722
  Serious: No
  Sender: FDA-Public Use
  Company Number: US-SA-SAC20230405000336

PATIENT
  Age: 77 Year
  Sex: Female

DRUGS (1)
  1. DUPIXENT [Suspect]
     Active Substance: DUPILUMAB
     Indication: Dermatitis allergic
     Dosage: 300 MG, QOW
     Route: 058
     Dates: start: 20230330, end: 20230330

REACTIONS (5)
  - Sleep disorder [Unknown]
  - Condition aggravated [Unknown]
  - Pruritus [Unknown]
  - Vision blurred [Unknown]
  - Condition aggravated [Unknown]

NARRATIVE: CASE EVENT DATE: 20230330
